FAERS Safety Report 24668649 (Version 1)
Quarter: 2024Q4

REPORT INFORMATION
  Report Type: Spontaneous
  Country: US (occurrence: US)
  Receive Date: 20241127
  Receipt Date: 20241127
  Transmission Date: 20250114
  Serious: Yes (Life-Threatening, Hospitalization, Other)
  Sender: AUROBINDO
  Company Number: US-MLMSERVICE-20241106-PI250814-00072-1

PATIENT
  Age: 71 Year
  Sex: Female

DRUGS (4)
  1. BUPIVACAINE HYDROCHLORIDE [Suspect]
     Active Substance: BUPIVACAINE HYDROCHLORIDE
     Indication: Local anaesthesia
     Dosage: 25 MILLILITER
     Route: 065
  2. PROPOFOL [Suspect]
     Active Substance: PROPOFOL
     Indication: Anaesthesia
     Dosage: UNK
     Route: 065
  3. INTRALIPID [Suspect]
     Active Substance: EGG PHOSPHOLIPIDS\GLYCERIN\SOYBEAN OIL
     Indication: Local anaesthetic systemic toxicity
     Dosage: 1.5 MILLILITRE PER KILOGRAM (AT A DOSE OF 1.5 ML/KG, FOLLOWED BY A CONSTANT INFUSION OF INTRALIPIDS
     Route: 065
  4. INTRALIPID [Suspect]
     Active Substance: EGG PHOSPHOLIPIDS\GLYCERIN\SOYBEAN OIL
     Dosage: 0.25 MILLILITRE PER KILOGRAM (1 MIN)
     Route: 065

REACTIONS (3)
  - Local anaesthetic systemic toxicity [Recovered/Resolved]
  - Pancreatitis necrotising [Recovered/Resolved]
  - Hypertriglyceridaemia [Recovered/Resolved]
